FAERS Safety Report 9145952 (Version 1)
Quarter: 2013Q1

REPORT INFORMATION
  Report Type: Spontaneous
  Country: US (occurrence: None)
  Receive Date: 20130220
  Receipt Date: 20130220
  Transmission Date: 20140127
  Serious: Yes (Death)
  Sender: FDA-Public Use
  Company Number: TPA2013A01490

PATIENT
  Age: 5 Decade
  Sex: Male

DRUGS (1)
  1. EDARBYCLOR [Suspect]
     Indication: HYPERTENSION
     Route: 048

REACTIONS (1)
  - Death [None]
